FAERS Safety Report 17408006 (Version 1)
Quarter: 2020Q1

REPORT INFORMATION
  Report Type: Spontaneous
  Country: US (occurrence: US)
  Receive Date: 20200212
  Receipt Date: 20200212
  Transmission Date: 20200409
  Serious: No
  Sender: FDA-Public Use
  Company Number: US-PFIZER INC-2020061355

PATIENT
  Age: 64 Year
  Sex: Female
  Weight: 68.4 kg

DRUGS (9)
  1. ZOFRAN [Concomitant]
     Active Substance: ONDANSETRON HYDROCHLORIDE
     Indication: GASTROOESOPHAGEAL REFLUX DISEASE
     Dosage: 4 MG, 3X/DAY (1 TABLET EVERY 8 HOURS BY MOUTH)
     Route: 048
  2. CHANTIX [Suspect]
     Active Substance: VARENICLINE TARTRATE
     Indication: SMOKING CESSATION THERAPY
     Dosage: 0.5 MG, ONCE A DAY (1 TABLET PER DAY WITH WATER)
     Route: 048
     Dates: start: 20200206, end: 20200208
  3. REGLAN [Concomitant]
     Active Substance: METOCLOPRAMIDE HYDROCHLORIDE
     Indication: GASTROOESOPHAGEAL REFLUX DISEASE
     Dosage: 10 MG, 4X/DAY (1 TABLET BY MOUTH 4 TIMES A DAY)
     Route: 048
  4. PROTONIX [Concomitant]
     Active Substance: PANTOPRAZOLE SODIUM
     Indication: GASTROOESOPHAGEAL REFLUX DISEASE
     Dosage: 40 MG, 1X/DAY (1 TABLET WHEN SHE GETS UP IN THE MORNING BY MOUTH)
     Route: 048
  5. PROTONIX [Concomitant]
     Active Substance: PANTOPRAZOLE SODIUM
     Indication: GASTRITIS
  6. OXYCODONE [Concomitant]
     Active Substance: OXYCODONE
     Indication: SPINAL OPERATION
  7. OXYCODONE [Concomitant]
     Active Substance: OXYCODONE
     Indication: PAIN
     Dosage: 15 MG, AS NEEDED (ALLOWED 4 TABLETS A DAY EVERY 4 HOURS AS NEEDED)
     Route: 048
  8. CHANTIX [Suspect]
     Active Substance: VARENICLINE TARTRATE
     Dosage: 0.5 MG, TWICE A DAY (ONE TABLET IN THE MORNING AND ONE TABLET AT NIGHT)
     Route: 048
     Dates: start: 20200209, end: 20200209
  9. ZOFRAN [Concomitant]
     Active Substance: ONDANSETRON HYDROCHLORIDE
     Indication: GASTRITIS

REACTIONS (9)
  - Night sweats [Not Recovered/Not Resolved]
  - Flatulence [Not Recovered/Not Resolved]
  - Tremor [Not Recovered/Not Resolved]
  - Nervousness [Unknown]
  - Abdominal distension [Not Recovered/Not Resolved]
  - Middle insomnia [Unknown]
  - Anxiety [Unknown]
  - Nausea [Not Recovered/Not Resolved]
  - Feeling of body temperature change [Unknown]

NARRATIVE: CASE EVENT DATE: 20200208
